FAERS Safety Report 24680921 (Version 2)
Quarter: 2025Q3

REPORT INFORMATION
  Report Type: Spontaneous
  Country: US (occurrence: US)
  Receive Date: 20241129
  Receipt Date: 20250703
  Transmission Date: 20251021
  Serious: No
  Sender: SANOFI AVENTIS
  Company Number: US-SA-2024SA348502

PATIENT
  Age: 23 Year
  Sex: Female
  Weight: 66.22 kg

DRUGS (5)
  1. CEREZYME [Suspect]
     Active Substance: IMIGLUCERASE
     Indication: Complement factor abnormal
     Dosage: 4000 U, QOW
     Route: 042
     Dates: start: 202302
  2. SODIUM CHLORIDE [Concomitant]
     Active Substance: SODIUM CHLORIDE
  3. SODIUM CHLORIDE [Concomitant]
     Active Substance: SODIUM CHLORIDE
  4. STERILE WATER [Concomitant]
     Active Substance: WATER
  5. EPINEPHRINE [Concomitant]
     Active Substance: EPINEPHRINE

REACTIONS (1)
  - Weight increased [Unknown]

NARRATIVE: CASE EVENT DATE: 20240101
